FAERS Safety Report 14948064 (Version 4)
Quarter: 2018Q3

REPORT INFORMATION
  Report Type: Spontaneous
  Country: US (occurrence: US)
  Receive Date: 20180529
  Receipt Date: 20180801
  Transmission Date: 20181010
  Serious: Yes (Congenital Anomaly, Other)
  Sender: FDA-Public Use
  Company Number: PHEH2018US020686

PATIENT
  Sex: Male

DRUGS (1)
  1. ZOFRAN [Suspect]
     Active Substance: ONDANSETRON HYDROCHLORIDE
     Indication: FOETAL EXPOSURE DURING PREGNANCY
     Dosage: MOTHER^S DOSE: 8 MG, QD
     Route: 064

REACTIONS (38)
  - Pneumonia [Unknown]
  - Abnormal weight gain [Unknown]
  - Aortic valve incompetence [Unknown]
  - Mitral valve incompetence [Recovered/Resolved]
  - Cough [Unknown]
  - Vomiting [Unknown]
  - Rash [Unknown]
  - Otitis media acute [Unknown]
  - Congenital aortic valve stenosis [Unknown]
  - Right ventricular hypertrophy [Unknown]
  - Foetal exposure during pregnancy [Unknown]
  - Anaemia [Unknown]
  - Viral pharyngitis [Unknown]
  - Oropharyngeal pain [Unknown]
  - Seasonal allergy [Unknown]
  - Cardiac murmur [Unknown]
  - Rhinitis [Unknown]
  - Gastroenteritis [Unknown]
  - Fatigue [Unknown]
  - Mitral valve stenosis [Unknown]
  - Epistaxis [Unknown]
  - Dyspnoea [Unknown]
  - Rhinorrhoea [Unknown]
  - Teething [Unknown]
  - Atrial septal defect [Unknown]
  - Skin abrasion [Unknown]
  - Asthma [Unknown]
  - Pyrexia [Unknown]
  - Tonsillar hypertrophy [Unknown]
  - Left-to-right cardiac shunt [Unknown]
  - Left ventricular dysfunction [Recovered/Resolved]
  - Upper respiratory tract infection [Unknown]
  - Bronchial hyperreactivity [Unknown]
  - Lymphadenopathy [Unknown]
  - Congenital aortic stenosis [Unknown]
  - Head injury [Unknown]
  - Acute sinusitis [Unknown]
  - Pharyngitis streptococcal [Unknown]
